FAERS Safety Report 7231084-3 (Version None)
Quarter: 2011Q1

REPORT INFORMATION
  Report Type: 
  Country: None (occurrence: None)
  Receive Date: 20110118
  Receipt Date: 20110113
  Transmission Date: 20110831
  Serious: No
  Sender: FDA-Public Use
  Company Number: US-TEVA-263143USA

PATIENT
  Sex: Female
  Weight: 22.7 kg

DRUGS (1)
  1. ALBUTEROL SULFATE AUTOHALER [Suspect]
     Route: 055
     Dates: start: 20110112, end: 20110112

REACTIONS (2)
  - URTICARIA [None]
  - RASH [None]
